FAERS Safety Report 11962207 (Version 1)
Quarter: 2016Q1

REPORT INFORMATION
  Report Type: Spontaneous
  Country: JP (occurrence: JP)
  Receive Date: 20160126
  Receipt Date: 20160126
  Transmission Date: 20160526
  Serious: Yes (Death)
  Sender: FDA-Public Use
  Company Number: JP-ROCHE-1685067

PATIENT
  Age: 64 Year
  Sex: Male
  Weight: 56 kg

DRUGS (8)
  1. CARBOPLATIN. [Concomitant]
     Active Substance: CARBOPLATIN
     Indication: LUNG ADENOCARCINOMA
     Route: 041
     Dates: start: 20150729, end: 20151201
  2. VALSARTAN. [Concomitant]
     Active Substance: VALSARTAN
     Indication: HYPERTENSION
     Route: 048
     Dates: end: 20151206
  3. TULOBUTEROL [Concomitant]
     Active Substance: TULOBUTEROL
     Indication: LUNG ADENOCARCINOMA
     Route: 062
     Dates: end: 20151206
  4. PACLITAXEL. [Concomitant]
     Active Substance: PACLITAXEL
     Indication: LUNG ADENOCARCINOMA
     Route: 041
     Dates: start: 20150729, end: 20151201
  5. AMLODIPINE [Concomitant]
     Active Substance: AMLODIPINE BESYLATE
     Indication: HYPERTENSION
     Route: 048
     Dates: end: 20151206
  6. CLEANAL [Concomitant]
     Active Substance: FUDOSTEINE
     Indication: LUNG ADENOCARCINOMA
     Route: 048
     Dates: end: 20151206
  7. AVASTIN [Suspect]
     Active Substance: BEVACIZUMAB
     Indication: LUNG ADENOCARCINOMA
     Dosage: MOST RECENT DOSE WAS GIVEN ON 01/DEC/2015
     Route: 041
     Dates: start: 20150729
  8. TARCEVA [Suspect]
     Active Substance: ERLOTINIB HYDROCHLORIDE
     Indication: LUNG ADENOCARCINOMA
     Route: 048
     Dates: start: 20151121, end: 20151125

REACTIONS (2)
  - Interstitial lung disease [Fatal]
  - Hypoaesthesia [Unknown]

NARRATIVE: CASE EVENT DATE: 20151124
